FAERS Safety Report 6607945-2 (Version None)
Quarter: 2010Q1

REPORT INFORMATION
  Report Type: 
  Country: None (occurrence: None)
  Receive Date: 20100225
  Receipt Date: 20100225
  Transmission Date: 20100710
  Serious: Yes (Life-Threatening, Hospitalization)
  Sender: FDA-Public Use
  Company Number: None

PATIENT
  Age: 58 Year
  Sex: Male
  Weight: 89 kg

DRUGS (2)
  1. RISPERIDONE [Suspect]
     Indication: BIPOLAR I DISORDER
     Dosage: 1 MG EVERY DAY PO
     Route: 048
     Dates: start: 20081231, end: 20090213
  2. DIVALPROEX SODIUM [Suspect]
     Indication: BIPOLAR I DISORDER
     Dosage: 500 MG OTHER
     Dates: start: 20080829, end: 20090213

REACTIONS (5)
  - DIABETIC HYPEROSMOLAR COMA [None]
  - HEPATIC FAILURE [None]
  - HYPERKALAEMIA [None]
  - PANCREATITIS [None]
  - RENAL FAILURE ACUTE [None]
